FAERS Safety Report 6535836-4 (Version None)
Quarter: 2010Q1

REPORT INFORMATION
  Report Type: 
  Country: None (occurrence: None)
  Receive Date: 20100106
  Receipt Date: 20091222
  Transmission Date: 20100710
  Serious: Yes (Hospitalization)
  Sender: FDA-Public Use
  Company Number: 2009BM000357

PATIENT
  Age: 17 Year
  Sex: Female

DRUGS (1)
  1. NAGLAZYME [Suspect]
     Indication: MUCOPOLYSACCHARIDOSIS VI
     Dosage: 25 MG;QW;IVPDRP
     Route: 041
     Dates: start: 20080118

REACTIONS (2)
  - ARRHYTHMIA [None]
  - INFUSION RELATED REACTION [None]
